FAERS Safety Report 16339674 (Version 1)
Quarter: 2019Q2

REPORT INFORMATION
  Report Type: Spontaneous
  Country: US (occurrence: US)
  Receive Date: 20190521
  Receipt Date: 20190521
  Transmission Date: 20190711
  Serious: No
  Sender: FDA-Public Use
  Company Number: US-TEVA-2019-US-1047604

PATIENT
  Sex: Female

DRUGS (1)
  1. AZITHROMYCIN ANHYDROUS. [Suspect]
     Active Substance: AZITHROMYCIN ANHYDROUS
     Dosage: FORM STRENGTH: 200 MG/5 ML.
     Route: 048

REACTIONS (3)
  - Burning sensation [Unknown]
  - Product odour abnormal [Unknown]
  - Product taste abnormal [Unknown]
